FAERS Safety Report 7221534-0 (Version None)
Quarter: 2010Q4

REPORT INFORMATION
  Report Type: 
  Country: None (occurrence: None)
  Receive Date: 20101230
  Receipt Date: 20101221
  Transmission Date: 20110411
  Serious: Yes (Other)
  Sender: FDA-Public Use
  Company Number: 2010S1001043

PATIENT
  Sex: Male
  Weight: 99 kg

DRUGS (1)
  1. LIVALO [Suspect]
     Indication: BLOOD CHOLESTEROL ABNORMAL
     Dosage: 2 MG; PO
     Route: 048
     Dates: start: 20100901, end: 20101129

REACTIONS (4)
  - BLOOD CREATINE PHOSPHOKINASE INCREASED [None]
  - MUSCLE SPASMS [None]
  - PAIN IN EXTREMITY [None]
  - TRANSAMINASES INCREASED [None]
